FAERS Safety Report 9657483 (Version 1)
Quarter: 2013Q4

REPORT INFORMATION
  Report Type: Spontaneous
  Country: US (occurrence: US)
  Receive Date: 20131030
  Receipt Date: 20131030
  Transmission Date: 20140711
  Serious: Yes (Other)
  Sender: FDA-Public Use
  Company Number: US-NAPPMUNDI-USA-2011-0077640

PATIENT
  Age: 16 Year
  Sex: Male

DRUGS (2)
  1. OXYCONTIN TABLETS [Suspect]
     Indication: DRUG ABUSE
  2. OXYCONTIN TABLETS [Suspect]
     Indication: OVERDOSE

REACTIONS (7)
  - Overdose [Unknown]
  - Drug abuse [Unknown]
  - Loss of consciousness [Unknown]
  - Aggression [Unknown]
  - Feeling abnormal [Unknown]
  - Dizziness [Unknown]
  - Abdominal pain upper [Unknown]
